FAERS Safety Report 7420435-2 (Version None)
Quarter: 2011Q2

REPORT INFORMATION
  Report Type: 
  Country: None (occurrence: None)
  Receive Date: 20110418
  Receipt Date: 20110412
  Transmission Date: 20111010
  Serious: Yes (Other)
  Sender: FDA-Public Use
  Company Number: US-PFIZER INC-2011080661

PATIENT
  Sex: Female
  Weight: 89 kg

DRUGS (7)
  1. CLONAZEPAM [Concomitant]
     Indication: SLEEP DISORDER
     Dosage: 0.5 MG, 1X/DAY
  2. NEURONTIN [Suspect]
     Indication: HYPOAESTHESIA
     Dosage: 300 MG, 3X/DAY
     Dates: start: 20100601
  3. NEURONTIN [Suspect]
     Indication: PARAESTHESIA
  4. PEPCID [Concomitant]
     Dosage: 40 MG, 2X/DAY
  5. CELEBREX [Concomitant]
     Dosage: 200 MG, 1X/DAY
  6. CELEXA [Concomitant]
     Dosage: 20 MG, 1X/DAY
  7. URSODIOL [Concomitant]
     Dosage: UNKNOWN DOSE TWO TIMES A DAY

REACTIONS (2)
  - HYPERPHAGIA [None]
  - WEIGHT INCREASED [None]
